FAERS Safety Report 4683537-X (Version None)
Quarter: 2005Q2

REPORT INFORMATION
  Report Type: 
  Country: None (occurrence: None)
  Receive Date: 20050606
  Receipt Date: 20050606
  Transmission Date: 20051028
  Serious: Yes (Hospitalization)
  Sender: FDA-Public Use
  Company Number: None

PATIENT
  Age: 79 Year
  Sex: Male
  Weight: 73.9 kg

DRUGS (1)
  1. TENECTEPLASE   50MG  GENETECH [Suspect]
     Indication: MYOCARDIAL INFARCTION
     Dosage: 40MG   ONCE    INTRAVENOU
     Route: 042
     Dates: start: 20050311, end: 20050311

REACTIONS (3)
  - HEMIPARESIS [None]
  - SICK SINUS SYNDROME [None]
  - SUBARACHNOID HAEMORRHAGE [None]
